FAERS Safety Report 8016455-X (Version None)
Quarter: 2011Q4

REPORT INFORMATION
  Report Type: 
  Country: None (occurrence: None)
  Receive Date: 20111230
  Receipt Date: 20111220
  Transmission Date: 20120403
  Serious: Yes (Other)
  Sender: FDA-Public Use
  Company Number: US-ABBOTT-11P-163-0878406-00

PATIENT
  Age: 28 Year
  Sex: Male

DRUGS (12)
  1. HUMIRA [Suspect]
     Dosage: DAY 1
     Dates: start: 20111010
  2. PROMETHAZINE [Concomitant]
     Indication: NAUSEA
  3. AZATHIOPRINE [Concomitant]
     Indication: PRODUCT USED FOR UNKNOWN INDICATION
  4. XANAX [Concomitant]
     Indication: ANXIETY
  5. OXYCODONE HCL [Concomitant]
     Indication: PRODUCT USED FOR UNKNOWN INDICATION
     Dosage: 8 TIMES DAILY AS REQUIRED
  6. ANTIOXIDANT [Concomitant]
     Indication: PRODUCT USED FOR UNKNOWN INDICATION
  7. HUMIRA [Suspect]
     Dosage: DAY 15
  8. METHADONE HCL [Concomitant]
     Indication: ABDOMINAL PAIN UPPER
  9. PREDNISONE TAB [Concomitant]
     Indication: PRODUCT USED FOR UNKNOWN INDICATION
  10. PREDNISONE TAB [Concomitant]
     Dosage: HASNT TAKEN FOR 2 DAYS
  11. KEPPRA [Concomitant]
     Indication: CONVULSION
  12. HUMIRA [Suspect]
     Indication: CROHN'S DISEASE

REACTIONS (19)
  - ABDOMINAL PAIN UPPER [None]
  - INSOMNIA [None]
  - LETHARGY [None]
  - RECTAL HAEMORRHAGE [None]
  - CONVULSION [None]
  - PAIN [None]
  - ROAD TRAFFIC ACCIDENT [None]
  - PYREXIA [None]
  - JOINT SWELLING [None]
  - CONDITION AGGRAVATED [None]
  - BODY TEMPERATURE INCREASED [None]
  - VOMITING [None]
  - HYPERHIDROSIS [None]
  - DRUG INEFFECTIVE [None]
  - FEELING ABNORMAL [None]
  - FATIGUE [None]
  - NAUSEA [None]
  - HAEMATOCHEZIA [None]
  - INFLUENZA [None]
